FAERS Safety Report 15114295 (Version 1)
Quarter: 2018Q3

REPORT INFORMATION
  Report Type: Report from Study
  Country: CA (occurrence: CA)
  Receive Date: 20180706
  Receipt Date: 20180706
  Transmission Date: 20181010
  Serious: No
  Sender: FDA-Public Use
  Company Number: CA-SA-2017SA235264

PATIENT
  Age: 37 Year
  Sex: Female

DRUGS (11)
  1. ALEMTUZUMAB [Suspect]
     Active Substance: ALEMTUZUMAB
     Dosage: 12 MG,QD
     Route: 041
     Dates: start: 20171128, end: 20171130
  2. ACETAMINOPHEN. [Concomitant]
     Active Substance: ACETAMINOPHEN
     Dosage: 1 G,QD
     Route: 048
     Dates: start: 20171128, end: 20171130
  3. REACTINE [CETIRIZINE HYDROCHLORIDE] [Concomitant]
     Active Substance: CETIRIZINE HYDROCHLORIDE
     Dosage: 5 MG,UNK
     Route: 048
     Dates: start: 20171128, end: 20171130
  4. ZANTAC [Concomitant]
     Active Substance: RANITIDINE HYDROCHLORIDE
     Indication: PREMEDICATION
     Dosage: 150 MG,UNK
     Route: 048
     Dates: start: 20171121, end: 20171122
  5. REACTINE [CETIRIZINE HYDROCHLORIDE] [Concomitant]
     Active Substance: CETIRIZINE HYDROCHLORIDE
     Indication: PREMEDICATION
     Dosage: 5 MG,UNK
     Route: 048
     Dates: start: 20171121, end: 20171122
  6. ACICLOVIR [Concomitant]
     Active Substance: ACYCLOVIR
     Indication: PREMEDICATION
     Dosage: 20 MG,UNK
     Route: 048
     Dates: start: 20171121
  7. ACETAMINOPHEN. [Concomitant]
     Active Substance: ACETAMINOPHEN
     Indication: PREMEDICATION
     Dosage: 1 G,PRN
     Route: 048
     Dates: start: 20171121
  8. ALEMTUZUMAB [Suspect]
     Active Substance: ALEMTUZUMAB
     Dosage: 12 MG,QD
     Route: 041
     Dates: start: 20171121, end: 20171122
  9. ZANTAC [Concomitant]
     Active Substance: RANITIDINE HYDROCHLORIDE
     Dosage: 150 MG,UNK
     Route: 048
     Dates: start: 20171128, end: 20171130
  10. METHYLPREDNISOLONE. [Concomitant]
     Active Substance: METHYLPREDNISOLONE
     Indication: PREMEDICATION
     Dosage: 1 G,UNK
     Route: 042
     Dates: start: 20171121, end: 20171122
  11. METHYLPREDNISOLONE. [Concomitant]
     Active Substance: METHYLPREDNISOLONE
     Dosage: 1 G,UNK
     Route: 042
     Dates: start: 20171128, end: 20171130

REACTIONS (19)
  - Eructation [Recovered/Resolved]
  - Bacterial test [Recovered/Resolved]
  - Urine analysis abnormal [Not Recovered/Not Resolved]
  - Flatulence [Recovered/Resolved]
  - Stress [Not Recovered/Not Resolved]
  - Insomnia [Recovered/Resolved]
  - Lymphocyte count decreased [Not Recovered/Not Resolved]
  - Panic attack [Recovering/Resolving]
  - Culture urine positive [Unknown]
  - Neutrophil percentage increased [Not Recovered/Not Resolved]
  - Blood urine present [Recovered/Resolved]
  - Lymphocyte percentage decreased [Not Recovered/Not Resolved]
  - Urinary sediment present [Not Recovered/Not Resolved]
  - Headache [Recovered/Resolved]
  - Anxiety [Not Recovered/Not Resolved]
  - Urine leukocyte esterase [Recovered/Resolved]
  - Fatigue [Recovered/Resolved]
  - Non-cardiac chest pain [Recovering/Resolving]
  - Streptococcal infection [Unknown]

NARRATIVE: CASE EVENT DATE: 20171121
